FAERS Safety Report 18089804 (Version 2)
Quarter: 2020Q3

REPORT INFORMATION
  Report Type: Report from Study
  Country: None (occurrence: US)
  Receive Date: 20200730
  Receipt Date: 20200923
  Transmission Date: 20201103
  Serious: Yes (Other)
  Sender: FDA-Public Use
  Company Number: US-ABBVIE-20K-163-3502096-00

PATIENT
  Age: 48 Year
  Sex: Male
  Weight: 68.1 kg

DRUGS (2)
  1. HUMIRA [Suspect]
     Active Substance: ADALIMUMAB
     Indication: RHEUMATOID ARTHRITIS
     Route: 058
     Dates: start: 201912
  2. HUMIRA [Suspect]
     Active Substance: ADALIMUMAB
     Indication: PSORIATIC ARTHROPATHY
     Route: 058

REACTIONS (5)
  - Wrong technique in product usage process [Unknown]
  - Limb injury [Unknown]
  - Injection site erythema [Recovered/Resolved]
  - Shoulder operation [Recovering/Resolving]
  - Pain in extremity [Not Recovered/Not Resolved]

NARRATIVE: CASE EVENT DATE: 202006
